FAERS Safety Report 8101822-6 (Version None)
Quarter: 2012Q1

REPORT INFORMATION
  Report Type: 
  Country: None (occurrence: None)
  Receive Date: 20120131
  Receipt Date: 20120124
  Transmission Date: 20120608
  Serious: Yes (Other)
  Sender: FDA-Public Use
  Company Number: PHHY2011US55747

PATIENT
  Sex: Male
  Weight: 113.38 kg

DRUGS (6)
  1. GILENYA [Suspect]
     Indication: MULTIPLE SCLEROSIS
     Dosage: 0.5 MG, QD
     Route: 048
  2. AMANTADINE HCL [Concomitant]
     Dosage: 100 MG, UNK
  3. LEXAPRO [Concomitant]
     Dosage: 5 MG, UNK
  4. XANAX [Concomitant]
     Dosage: 0.25 MG, UNK
  5. METFORMIN HCL [Concomitant]
     Dosage: 500 MG, UNK
  6. VITAMIN B-12 [Concomitant]
     Dosage: 250 UG, UNK

REACTIONS (5)
  - FALL [None]
  - CONTUSION [None]
  - SUICIDAL IDEATION [None]
  - BALANCE DISORDER [None]
  - BACK PAIN [None]
